FAERS Safety Report 7049356 (Version 10)
Quarter: 2013Q3

REPORT INFORMATION
  Report Type: Report from Study
  Country: US (occurrence: US)
  Receive Date: 20090714
  Receipt Date: 20130715
  Transmission Date: 20140515
  Serious: Yes (Hospitalization, Other)
  Sender: FDA-Public Use
  Company Number: PHHO2008US14660

PATIENT
  Age: 78 Year
  Sex: Male
  Weight: 84.3 kg

DRUGS (34)
  1. TASIGNA [Suspect]
     Indication: CHRONIC MYELOID LEUKAEMIA
     Dosage: 800 MG, QD
     Route: 048
     Dates: start: 20090619, end: 20090624
  2. STI571 [Suspect]
     Indication: CHRONIC MYELOID LEUKAEMIA
     Dosage: 400 MG, QD
     Route: 048
     Dates: start: 20071116
  3. STI571 [Suspect]
     Dosage: NO TREATMENT
     Dates: start: 20080424, end: 20080501
  4. STI571 [Suspect]
     Dosage: 400 MG, QD
     Dates: start: 20080502
  5. STI571 [Suspect]
     Dosage: NO TREATMENT
     Dates: start: 20081221, end: 20081223
  6. STI571 [Suspect]
     Dosage: 400 MG
     Route: 048
     Dates: start: 20081224
  7. AMIODARONE [Suspect]
  8. CHEMOTHERAPEUTICS NOS [Suspect]
  9. DIOVAN [Concomitant]
  10. SYNTHROID [Concomitant]
  11. POTASSIUM [Concomitant]
  12. LASIX [Concomitant]
  13. TOPROL XL [Concomitant]
  14. CARDURA [Concomitant]
  15. LIPITOR [Concomitant]
  16. NIASPAN [Concomitant]
  17. ASPIRIN [Concomitant]
  18. OMEPRAZOLE [Concomitant]
  19. NORVASC [Concomitant]
  20. ALLOPURINOL [Concomitant]
  21. NEURONTIN [Concomitant]
  22. VICODIN [Concomitant]
  23. LIDODERM [Concomitant]
  24. COMPAZINE [Concomitant]
  25. MEGACE [Concomitant]
  26. FLOMAX ^BOEHRINGER INGELHEIM^ [Concomitant]
  27. PRILOSEC [Concomitant]
  28. AMLODIPINE [Concomitant]
  29. CLONIDINE [Concomitant]
  30. MULTIVITAMINS [Concomitant]
  31. VITAMIN C [Concomitant]
  32. BYSTOLIC [Concomitant]
  33. FUROSEMIDE [Concomitant]
  34. PACLITAXEL [Concomitant]

REACTIONS (5)
  - Pyrexia [Unknown]
  - Joint injury [Recovered/Resolved]
  - Fall [Recovered/Resolved]
  - Sepsis [Recovered/Resolved]
  - Pneumonia [Recovered/Resolved]
